FAERS Safety Report 6294340-1 (Version None)
Quarter: 2009Q3

REPORT INFORMATION
  Report Type: 
  Country: None (occurrence: None)
  Receive Date: 20090803
  Receipt Date: 20090721
  Transmission Date: 20100115
  Serious: Yes (Other)
  Sender: FDA-Public Use
  Company Number: BR-PFIZER INC-2009243941

PATIENT
  Age: 32 Year

DRUGS (1)
  1. CHAMPIX [Suspect]
     Indication: TOBACCO USER
     Dosage: UNK

REACTIONS (2)
  - NERVOUS SYSTEM DISORDER [None]
  - SUICIDAL IDEATION [None]
